FAERS Safety Report 25613311 (Version 1)
Quarter: 2025Q3

REPORT INFORMATION
  Report Type: Report from Study
  Country: EU (occurrence: EU)
  Receive Date: 20250728
  Receipt Date: 20250728
  Transmission Date: 20251020
  Serious: Yes (Hospitalization)
  Sender: MYLAN
  Company Number: EU-JNJFOC-20250706341

PATIENT
  Sex: Female
  Weight: 65 kg

DRUGS (5)
  1. LENALIDOMIDE [Suspect]
     Active Substance: LENALIDOMIDE
     Indication: Plasma cell myeloma
  2. DARZALEX [Suspect]
     Active Substance: DARATUMUMAB
     Indication: Plasma cell myeloma
  3. DEXAMETHASONE [Suspect]
     Active Substance: DEXAMETHASONE
     Indication: Plasma cell myeloma
  4. DEXAMETHASONE [Suspect]
     Active Substance: DEXAMETHASONE
     Dates: start: 20210729, end: 20240724
  5. DEXAMETHASONE [Suspect]
     Active Substance: DEXAMETHASONE
     Indication: Plasma cell myeloma

REACTIONS (1)
  - COVID-19 pneumonia [Recovered/Resolved with Sequelae]

NARRATIVE: CASE EVENT DATE: 20240124
